FAERS Safety Report 14907984 (Version 1)
Quarter: 2018Q2

REPORT INFORMATION
  Report Type: Spontaneous
  Country: US (occurrence: US)
  Receive Date: 20180430
  Receipt Date: 20180430
  Transmission Date: 20180711
  Serious: No
  Sender: FDA-Public Use
  Company Number: None

PATIENT
  Age: 58 Year
  Sex: Female

DRUGS (1)
  1. TALTZ [Suspect]
     Active Substance: IXEKIZUMAB
     Dosage: ?          OTHER FREQUENCY:EVERY 2 WEEKS;?
     Route: 058

REACTIONS (7)
  - Rhinorrhoea [None]
  - Paranasal sinus discomfort [None]
  - Nasal congestion [None]
  - Oropharyngeal pain [None]
  - Cough [None]
  - Headache [None]
  - Viral infection [None]

NARRATIVE: CASE EVENT DATE: 20180428
